FAERS Safety Report 18307718 (Version 1)
Quarter: 2020Q3

REPORT INFORMATION
  Report Type: Spontaneous
  Country: NL (occurrence: NL)
  Receive Date: 20200924
  Receipt Date: 20200924
  Transmission Date: 20201103
  Serious: Yes (Other)
  Sender: FDA-Public Use
  Company Number: NL-MYLANLABS-2020M1080335

PATIENT
  Age: 66 Year
  Sex: Male
  Weight: 101 kg

DRUGS (9)
  1. OXYCODON [Concomitant]
     Active Substance: OXYCODONE
     Dosage: 30 MILLIGRAM, QD (2 X DAAGS 3 X 5 MG)
     Route: 048
  2. OMEPRAZOL                          /00661201/ [Concomitant]
     Active Substance: OMEPRAZOLE
     Dosage: 20 MILLIGRAM, QD(1 X DAAGS)
     Route: 048
  3. SIMVASTATIN. [Suspect]
     Active Substance: SIMVASTATIN
     Indication: PROPHYLAXIS
     Dosage: 40 MILLIGRAM, QD(1 X DGS)
     Route: 048
     Dates: start: 2004, end: 20160419
  4. GLICLAZIDE [Concomitant]
     Active Substance: GLICLAZIDE
     Dosage: 160 MILLIGRAM, QD(2 X DAAGS)
     Route: 048
  5. LIRAGLUTIDE [Concomitant]
     Active Substance: LIRAGLUTIDE
     Dosage: 1.8 MILLIGRAM, QD(1,8 MG 1 X DAAGS)
     Route: 058
  6. ZOLADEX [Concomitant]
     Active Substance: GOSERELIN ACETATE
     Dosage: 1 DOSAGE FORM, Q3MONTHS (1 X PER 3 MAANDEN)
     Route: 058
  7. BICALUTAMIDE. [Interacting]
     Active Substance: BICALUTAMIDE
     Indication: PROSTATE CANCER
     Dosage: 150 MILLIGRAM, QD (1 X DGS)
     Route: 048
     Dates: start: 20150818
  8. OXYCODON [Concomitant]
     Active Substance: OXYCODONE
     Dosage: 20 MILLIGRAM, PRN, (1 TOT 4 X DAAGS NAAR BEHOEFTE BIJ DO)
     Route: 048
  9. METFORMINE                         /00082701/ [Concomitant]
     Active Substance: METFORMIN HYDROCHLORIDE
     Dosage: 1000 MILLIGRAM, QD(2 X DAAGS)
     Route: 048

REACTIONS (4)
  - Blood glucose fluctuation [Not Recovered/Not Resolved]
  - Drug interaction [Unknown]
  - Osteonecrosis [Recovered/Resolved]
  - Weight increased [Unknown]

NARRATIVE: CASE EVENT DATE: 201509
